FAERS Safety Report 7225918-6 (Version None)
Quarter: 2011Q1

REPORT INFORMATION
  Report Type: 
  Country: None (occurrence: None)
  Receive Date: 20110113
  Receipt Date: 20110104
  Transmission Date: 20110831
  Serious: Yes (Other)
  Sender: FDA-Public Use
  Company Number: US-PFIZER INC-2011002030

PATIENT
  Sex: Female
  Weight: 99.773 kg

DRUGS (6)
  1. MONTELUKAST [Concomitant]
     Indication: ASTHMA
     Dosage: 10 MG, DAILY
  2. DILANTIN [Suspect]
     Indication: ARTERIOVENOUS MALFORMATION
     Dosage: 360 MG (300MG + 60MG), 1X/DAY
     Route: 048
     Dates: start: 19800101
  3. LEVOTHYROXINE [Concomitant]
     Indication: HYPOTHYROIDISM
     Dosage: 200 MCG, DAILY
  4. CRESTOR [Concomitant]
     Indication: BLOOD CHOLESTEROL INCREASED
     Dosage: 10 MG, DAILY
  5. BENICAR HCT [Concomitant]
     Indication: HYPERTENSION
     Dosage: 40MG/12.5 MG, DAILY
  6. FOLIC ACID [Concomitant]
     Dosage: 80 MG, DAILY

REACTIONS (4)
  - DRUG LEVEL INCREASED [None]
  - BALANCE DISORDER [None]
  - DRY MOUTH [None]
  - TREMOR [None]
